FAERS Safety Report 14788506 (Version 1)
Quarter: 2018Q2

REPORT INFORMATION
  Report Type: Spontaneous
  Country: FR (occurrence: FR)
  Receive Date: 20180423
  Receipt Date: 20180423
  Transmission Date: 20180711
  Serious: Yes (Hospitalization)
  Sender: FDA-Public Use
  Company Number: FR-009507513-1804FRA007132

PATIENT
  Age: 52 Year
  Sex: Male

DRUGS (3)
  1. DIPRIVAN [Suspect]
     Active Substance: PROPOFOL
     Indication: ANAESTHESIA
     Dosage: 6 IU/KG, ONCE, IN TOTAL, STRENGTH 1G/100 ML
     Route: 042
     Dates: start: 20180318, end: 20180318
  2. ESMERON [Suspect]
     Active Substance: ROCURONIUM BROMIDE
     Indication: ANAESTHESIA
     Dosage: 40 MG, ONCE, IN TOTAL
     Route: 042
     Dates: start: 20180318, end: 20180318
  3. SUFENTANIL CITRATE. [Suspect]
     Active Substance: SUFENTANIL CITRATE
     Indication: ANAESTHESIA
     Dosage: 12.5 MG/KG, ONCE, IN TOTAL
     Route: 042
     Dates: start: 20180318, end: 20180318

REACTIONS (1)
  - Hepatocellular injury [Recovering/Resolving]

NARRATIVE: CASE EVENT DATE: 20180320
